FAERS Safety Report 9504392 (Version 3)
Quarter: 2014Q1

REPORT INFORMATION
  Report Type: Report from Study
  Country: US (occurrence: US)
  Receive Date: 20130906
  Receipt Date: 20140107
  Transmission Date: 20141002
  Serious: Yes (Hospitalization)
  Sender: FDA-Public Use
  Company Number: US-VERTEX PHARMACEUTICALS INC-2013-009309

PATIENT
  Sex: Male

DRUGS (6)
  1. VX-950 (TELAPREVIR) [Suspect]
     Indication: HEPATITIS C
     Dosage: UNK
     Route: 048
     Dates: start: 20130612
  2. PEGASYS [Suspect]
     Indication: HEPATITIS C
     Dosage: UNK
     Dates: start: 20130612
  3. RIBAVIRIN [Suspect]
     Indication: HEPATITIS C
     Dosage: UNK
     Dates: start: 20130612
  4. LEXAPRO [Concomitant]
  5. KLONOPIN [Concomitant]
  6. TRAZODONE [Concomitant]

REACTIONS (3)
  - Fatigue [Unknown]
  - Anxiety [Unknown]
  - Insomnia [Unknown]
